FAERS Safety Report 8143975-X (Version None)
Quarter: 2012Q1

REPORT INFORMATION
  Report Type: 
  Country: None (occurrence: None)
  Receive Date: 20120217
  Receipt Date: 20120217
  Transmission Date: 20120608
  Serious: Yes (Hospitalization)
  Sender: FDA-Public Use
  Company Number: None

PATIENT
  Sex: Female
  Weight: 45.812 kg

DRUGS (1)
  1. ATELVIA [Suspect]
     Indication: BONE LOSS
     Dates: start: 20120208, end: 20120208

REACTIONS (6)
  - CHEST DISCOMFORT [None]
  - DEHYDRATION [None]
  - DYSPNOEA [None]
  - ABDOMINAL PAIN [None]
  - MYALGIA [None]
  - ASTHENIA [None]
